FAERS Safety Report 8605628-0 (Version None)
Quarter: 2012Q3

REPORT INFORMATION
  Report Type: 
  Country: None (occurrence: None)
  Receive Date: 20120820
  Receipt Date: 20120814
  Transmission Date: 20120928
  Serious: Yes (Hospitalization)
  Sender: FDA-Public Use
  Company Number: US-B.I. PHARMACEUTICALS,INC./RIDGEFIELD-2012-BP-17168BP

PATIENT
  Sex: Female

DRUGS (7)
  1. ATIVAN [Concomitant]
     Indication: ANXIETY
     Dosage: 4 MG
     Route: 048
  2. IRON [Concomitant]
     Indication: GASTROINTESTINAL HAEMORRHAGE
     Route: 048
  3. NEURONTIN [Concomitant]
     Indication: LIMB DISCOMFORT
     Dosage: 1200 MG
     Route: 048
  4. METFORMIN HCL [Concomitant]
     Indication: DIABETES MELLITUS
     Dosage: 1000 MG
     Route: 048
  5. SPIRIVA [Suspect]
     Indication: CHRONIC OBSTRUCTIVE PULMONARY DISEASE
     Dosage: 18 MCG
     Route: 055
     Dates: start: 20100101
  6. SPIRIVA [Suspect]
     Route: 048
     Dates: start: 20120730, end: 20120730
  7. CYMBALTA [Concomitant]
     Indication: NEUROPATHY PERIPHERAL
     Dosage: 90 MG
     Route: 048

REACTIONS (12)
  - GASTROINTESTINAL HAEMORRHAGE [None]
  - DIZZINESS [None]
  - INCORRECT ROUTE OF DRUG ADMINISTRATION [None]
  - DYSPNOEA [None]
  - HYPERHIDROSIS [None]
  - BLOOD COUNT ABNORMAL [None]
  - INSOMNIA [None]
  - UNEVALUABLE EVENT [None]
  - HYPOTENSION [None]
  - URINARY RETENTION [None]
  - DIARRHOEA [None]
  - GAIT DISTURBANCE [None]
